FAERS Safety Report 9862928 (Version 6)
Quarter: 2015Q1

REPORT INFORMATION
  Report Type: Spontaneous
  Country: US (occurrence: US)
  Receive Date: 20140203
  Receipt Date: 20150113
  Transmission Date: 20150721
  Serious: Yes (Death, Life-Threatening, Hospitalization, Other)
  Sender: FDA-Public Use
  Company Number: US-009507513-1401USA014680

PATIENT
  Sex: Male
  Weight: 83.9 kg

DRUGS (2)
  1. JANUVIA [Suspect]
     Active Substance: SITAGLIPTIN PHOSPHATE
     Indication: TYPE 2 DIABETES MELLITUS
     Dosage: 100 MG, QD
     Route: 048
     Dates: start: 20080606, end: 20081201
  2. JANUMET [Suspect]
     Active Substance: METFORMIN HYDROCHLORIDE\SITAGLIPTIN PHOSPHATE
     Indication: TYPE 2 DIABETES MELLITUS
     Dosage: 50 MG/1000 MG, QD
     Route: 048
     Dates: start: 20090414, end: 20100410

REACTIONS (49)
  - Metastases to liver [Unknown]
  - Hypovolaemia [Recovering/Resolving]
  - Decreased appetite [Unknown]
  - Atelectasis [Unknown]
  - Adrenal adenoma [Unknown]
  - Atelectasis [Unknown]
  - Renal cyst [Unknown]
  - Thrombocytopenia [Not Recovered/Not Resolved]
  - Benign prostatic hyperplasia [Unknown]
  - Bundle branch block right [Unknown]
  - Chest pain [Recovered/Resolved]
  - Vomiting [Recovered/Resolved]
  - Explorative laparotomy [Unknown]
  - Hypercholesterolaemia [Unknown]
  - Leukopenia [Unknown]
  - Small intestine carcinoma metastatic [Unknown]
  - Lymph node calcification [Unknown]
  - Abdominal distension [Recovered/Resolved]
  - Diverticulum intestinal [Unknown]
  - Toxicity to various agents [Unknown]
  - Urinary tract infection [Recovered/Resolved]
  - Abdominal pain [Recovered/Resolved]
  - Constipation [Not Recovered/Not Resolved]
  - Constipation [Unknown]
  - Dehydration [Unknown]
  - Hypothyroidism [Unknown]
  - Sinus bradycardia [Unknown]
  - Catheterisation cardiac [Unknown]
  - Nausea [Recovered/Resolved]
  - Diarrhoea [Recovered/Resolved]
  - Pancreatic carcinoma metastatic [Fatal]
  - Leukocytosis [Unknown]
  - Abdominal pain [Unknown]
  - Asthenia [Recovering/Resolving]
  - Granulomatous liver disease [Unknown]
  - Drug intolerance [Unknown]
  - Depression [Unknown]
  - Cholecystectomy [Unknown]
  - Coronary artery disease [Unknown]
  - Hydrocholecystis [Unknown]
  - Peritoneal mesothelioma malignant [Unknown]
  - Cholecystitis chronic [Recovered/Resolved]
  - Hepatic cyst [Unknown]
  - Spinal osteoarthritis [Unknown]
  - Hypertension [Unknown]
  - Dyspnoea [Recovered/Resolved]
  - Drug intolerance [Unknown]
  - Fall [Unknown]
  - Lipoma [Unknown]

NARRATIVE: CASE EVENT DATE: 20111116
